FAERS Safety Report 20233111 (Version 1)
Quarter: 2021Q4

REPORT INFORMATION
  Report Type: Spontaneous
  Country: IE (occurrence: IE)
  Receive Date: 20211227
  Receipt Date: 20211227
  Transmission Date: 20220303
  Serious: Yes (Hospitalization)
  Sender: FDA-Public Use
  Company Number: None

PATIENT
  Age: 59 Year
  Sex: Female

DRUGS (2)
  1. TOPAMAX [Suspect]
     Active Substance: TOPIRAMATE
     Indication: Migraine
     Dosage: 25MG AT NIGHT TO GO UP IN DOSE IN INCREMENTS (TREATMENT DURATION WAS LESS THAN 2 WEEKS)
     Route: 048
  2. PFIZER-BIONTECH COVID-19 VACCINE [Suspect]
     Active Substance: TOZINAMERAN
     Indication: COVID-19 immunisation
     Dosage: DOSE 2?CONCENTRATE FOR DISPERSION FOR INJECTION?TOZINAMERAN
     Route: 065
     Dates: start: 20210623

REACTIONS (11)
  - Angle closure glaucoma [Recovering/Resolving]
  - Malaise [Recovered/Resolved]
  - Migraine [Recovering/Resolving]
  - Vision blurred [Recovering/Resolving]
  - Ocular hypertension [Recovering/Resolving]
  - Pain [Recovered/Resolved]
  - Impaired work ability [Recovering/Resolving]
  - Tunnel vision [Recovering/Resolving]
  - Condition aggravated [Recovering/Resolving]
  - Visual impairment [Recovering/Resolving]
  - Headache [Recovering/Resolving]

NARRATIVE: CASE EVENT DATE: 20210601
